FAERS Safety Report 8292591-8 (Version None)
Quarter: 2012Q2

REPORT INFORMATION
  Report Type: 
  Country: None (occurrence: None)
  Receive Date: 20120417
  Receipt Date: 20110923
  Transmission Date: 20120825
  Serious: No
  Sender: FDA-Public Use
  Company Number: US-ASTRAZENECA-2011SE54992

PATIENT
  Age: 62 Year
  Sex: Female

DRUGS (3)
  1. VOLTAREN [Concomitant]
  2. LYRICA [Concomitant]
  3. NEXIUM [Suspect]
     Route: 048

REACTIONS (9)
  - FIBROMYALGIA [None]
  - NEURALGIA [None]
  - RHEUMATOID ARTHRITIS [None]
  - GASTROOESOPHAGEAL REFLUX DISEASE [None]
  - ODYNOPHAGIA [None]
  - WEIGHT INCREASED [None]
  - GAIT DISTURBANCE [None]
  - SWELLING [None]
  - DRUG DOSE OMISSION [None]
